FAERS Safety Report 6188785-8 (Version None)
Quarter: 2009Q2

REPORT INFORMATION
  Report Type: 
  Country: None (occurrence: None)
  Receive Date: 20090511
  Receipt Date: 20090511
  Transmission Date: 20091009
  Serious: No
  Sender: FDA-Public Use
  Company Number: None

PATIENT
  Age: 36 Year
  Sex: Female
  Weight: 76.6579 kg

DRUGS (2)
  1. MIRENA [Suspect]
     Indication: CONTRACEPTION
     Dosage: IUD UP TO 5 YEARS VAG
     Route: 067
     Dates: start: 20080911, end: 20090411
  2. MIRENA [Suspect]
     Indication: HAEMORRHAGE
     Dosage: IUD UP TO 5 YEARS VAG
     Route: 067
     Dates: start: 20080911, end: 20090411

REACTIONS (1)
  - INTRA-UTERINE CONTRACEPTIVE DEVICE EXPELLED [None]
